FAERS Safety Report 7277366-0 (Version None)
Quarter: 2011Q1

REPORT INFORMATION
  Report Type: 
  Country: None (occurrence: None)
  Receive Date: 20110207
  Receipt Date: 20110127
  Transmission Date: 20110831
  Serious: No
  Sender: FDA-Public Use
  Company Number: US-PFIZER INC-2011020350

PATIENT
  Sex: Male
  Weight: 68.934 kg

DRUGS (2)
  1. VIAGRA [Suspect]
     Indication: INJURY
     Dosage: 50 MG, AS NEEDED
     Route: 048
  2. HISTAMINE [Concomitant]
     Dosage: UNK

REACTIONS (1)
  - DRUG INTOLERANCE [None]
